FAERS Safety Report 18821995 (Version 2)
Quarter: 2022Q1

REPORT INFORMATION
  Report Type: Spontaneous
  Country: US (occurrence: US)
  Receive Date: 20210202
  Receipt Date: 20220321
  Transmission Date: 20220423
  Serious: No
  Sender: FDA-Public Use
  Company Number: US-PFIZER INC-2020438002

PATIENT
  Age: 33 Year
  Sex: Female
  Weight: 68.04 kg

DRUGS (1)
  1. RAPAMUNE [Suspect]
     Active Substance: SIROLIMUS
     Indication: Immunosuppression
     Dosage: 3 MG, DAILY (1MG TABLETS, 2 TABLETS IN THE MORNING AND 1 TABLET A NIGHT)
     Dates: start: 2007

REACTIONS (9)
  - Joint swelling [Not Recovered/Not Resolved]
  - Weight increased [Unknown]
  - Fluid retention [Unknown]
  - Abdominal distension [Not Recovered/Not Resolved]
  - Hypertension [Recovering/Resolving]
  - Periorbital swelling [Not Recovered/Not Resolved]
  - Urine output decreased [Recovering/Resolving]
  - Hypersensitivity [Unknown]
  - Off label use [Unknown]

NARRATIVE: CASE EVENT DATE: 20220310
